FAERS Safety Report 9460011 (Version 1)
Quarter: 2013Q3

REPORT INFORMATION
  Report Type: Report from Study
  Country: GB (occurrence: GB)
  Receive Date: 20130815
  Receipt Date: 20130815
  Transmission Date: 20140515
  Serious: Yes (Other)
  Sender: FDA-Public Use
  Company Number: GB-JNJFOC-20130805462

PATIENT
  Age: 78 Year
  Sex: Female
  Weight: 73 kg

DRUGS (3)
  1. REMICADE [Suspect]
     Indication: RHEUMATOID ARTHRITIS
     Dosage: INFLIXIMAB STOP DATE WAS NOT PROVIDED BUT IT WAS PRIOR TO FEB-2008
     Route: 042
     Dates: start: 20030615
  2. SULPHASALAZINE [Concomitant]
     Indication: RHEUMATOID ARTHRITIS
     Route: 065
  3. STEROIDS NOS [Concomitant]
     Indication: RHEUMATOID ARTHRITIS
     Route: 065

REACTIONS (1)
  - Breast cancer recurrent [Unknown]
